FAERS Safety Report 9221192 (Version 2)
Quarter: 2013Q2

REPORT INFORMATION
  Report Type: Spontaneous
  Country: US (occurrence: US)
  Receive Date: 20130410
  Receipt Date: 20130621
  Transmission Date: 20140414
  Serious: Yes (Death, Hospitalization)
  Sender: FDA-Public Use
  Company Number: US-PAR PHARMACEUTICAL, INC-2013SCPR005855

PATIENT
  Sex: 0

DRUGS (7)
  1. FENTANYL TRANSDERMAL SYSTEM [Suspect]
     Indication: SCOLIOSIS
     Dosage: 1 PATCH, EVERY 48 HOURS
     Route: 062
     Dates: start: 201209
  2. FENTANYL TRANSDERMAL SYSTEM [Suspect]
     Indication: SCIATICA
  3. ALPRAZOLAM [Suspect]
     Indication: DEPRESSION
     Dosage: UNK, UNKNOWN
     Route: 065
  4. CELEXA                             /00582602/ [Concomitant]
     Indication: DEPRESSION
     Dosage: UNK, UNKNOWN
     Route: 065
  5. CALCIUM [Concomitant]
     Indication: OSTEOPOROSIS
     Dosage: UNK, UNKNOWN
     Route: 065
  6. VITAMIN D                          /00107901/ [Concomitant]
     Indication: OSTEOPOROSIS
     Dosage: UNK, UNKNOWN
     Route: 065
  7. ALBUTEROL                          /00139501/ [Concomitant]
     Indication: LUNG DISORDER
     Dosage: UNK, UNKNOWN
     Route: 065

REACTIONS (2)
  - Pneumonia [Fatal]
  - Death [Fatal]
